FAERS Safety Report 23158811 (Version 2)
Quarter: 2023Q4

REPORT INFORMATION
  Report Type: Spontaneous
  Country: KR (occurrence: KR)
  Receive Date: 20231108
  Receipt Date: 20231114
  Transmission Date: 20240109
  Serious: Yes (Life-Threatening, Other)
  Sender: FDA-Public Use
  Company Number: KR-002147023-NVSC2023KR159458

PATIENT
  Age: 65 Year
  Sex: Male
  Weight: 63 kg

DRUGS (1)
  1. KYMRIAH [Suspect]
     Active Substance: TISAGENLECLEUCEL
     Indication: Diffuse large B-cell lymphoma
     Dosage: UNK, ONCE/SINGLE (FORMULATION: LIQUID)
     Route: 042
     Dates: start: 20230711

REACTIONS (9)
  - Platelet count decreased [Unknown]
  - Neutrophil count decreased [Unknown]
  - Pyrexia [Unknown]
  - Haematotoxicity [Unknown]
  - Immune effector cell-associated neurotoxicity syndrome [Unknown]
  - Diarrhoea [Unknown]
  - Cytopenia [Unknown]
  - Cytokine release syndrome [Unknown]
  - Asthenia [Unknown]

NARRATIVE: CASE EVENT DATE: 20230716
